FAERS Safety Report 11703848 (Version 1)
Quarter: 2015Q4

REPORT INFORMATION
  Report Type: Spontaneous
  Country: US (occurrence: None)
  Receive Date: 20151105
  Receipt Date: 20151105
  Transmission Date: 20160304
  Serious: Yes (Death)
  Sender: FDA-Public Use
  Company Number: None

PATIENT
  Age: 60 Year
  Sex: Female
  Weight: 69.4 kg

DRUGS (1)
  1. ABILIFY [Suspect]
     Active Substance: ARIPIPRAZOLE
     Indication: CRYING
     Dates: start: 20150821, end: 20150821

REACTIONS (3)
  - Death [None]
  - Sudden death [None]
  - Basal ganglia haemorrhage [None]

NARRATIVE: CASE EVENT DATE: 20150822
